FAERS Safety Report 16849107 (Version 1)
Quarter: 2019Q3

REPORT INFORMATION
  Report Type: Spontaneous
  Country: US (occurrence: US)
  Receive Date: 20190925
  Receipt Date: 20190925
  Transmission Date: 20191005
  Serious: No
  Sender: FDA-Public Use
  Company Number: US-DRREDDYS-USA/USA/19/0114195

PATIENT
  Age: 35 Year
  Sex: Female
  Weight: 64.35 kg

DRUGS (1)
  1. BUPRENORPHINE AND NALOXONE SUBLINGUAL FILM 2 MG/0.5 MG AND 8MG/2MG [Suspect]
     Active Substance: BUPRENORPHINE\NALOXONE
     Indication: SYSTEMIC LUPUS ERYTHEMATOSUS
     Dosage: BUPRENORPHINE 2 MG AND NALOXONE 0.5 MG AND WAS USING 2 AND HALF FILMS DAILY
     Route: 060
     Dates: start: 20190909

REACTIONS (4)
  - Product dose omission [Not Recovered/Not Resolved]
  - Product packaging quantity issue [Unknown]
  - Product use in unapproved indication [Unknown]
  - Wrong technique in product usage process [Unknown]

NARRATIVE: CASE EVENT DATE: 20190912
